FAERS Safety Report 7744023-3 (Version None)
Quarter: 2011Q3

REPORT INFORMATION
  Report Type: 
  Country: None (occurrence: None)
  Receive Date: 20110909
  Receipt Date: 20110909
  Transmission Date: 20111222
  Serious: Yes (Other)
  Sender: FDA-Public Use
  Company Number: None

PATIENT
  Age: 52 Year
  Sex: Female
  Weight: 88.905 kg

DRUGS (2)
  1. PREMARIN [Suspect]
     Dosage: DAILY
     Dates: start: 20000101, end: 20010101
  2. PREMPRO [Suspect]

REACTIONS (2)
  - BREAST CANCER FEMALE [None]
  - AMENORRHOEA [None]
